FAERS Safety Report 25256092 (Version 3)
Quarter: 2025Q3

REPORT INFORMATION
  Report Type: Report from Study
  Country: US (occurrence: US)
  Receive Date: 20250430
  Receipt Date: 20250702
  Transmission Date: 20251020
  Serious: No
  Sender: SUNOVION
  Company Number: US-SUMITOMO PHARMA SWITZERLAND GMBH-2025SPA004113

PATIENT

DRUGS (15)
  1. ORGOVYX [Suspect]
     Active Substance: RELUGOLIX
     Indication: Prostate cancer
     Dosage: 360 MG, SINGLE
     Route: 048
     Dates: start: 202503, end: 202503
  2. ORGOVYX [Suspect]
     Active Substance: RELUGOLIX
     Dosage: 120 MG, QD
     Route: 048
     Dates: start: 202503
  3. METFORMIN [Concomitant]
     Active Substance: METFORMIN HYDROCHLORIDE
     Route: 065
  4. VITAMINS [Concomitant]
     Active Substance: VITAMINS
     Route: 065
  5. PANTOPRAZOLE [Concomitant]
     Active Substance: PANTOPRAZOLE
     Route: 065
  6. VITAMIN C [Concomitant]
     Active Substance: ASCORBIC ACID
     Route: 065
  7. VITAMIN D3 [Concomitant]
     Active Substance: CHOLECALCIFEROL
     Route: 065
  8. ASPIRIN [Concomitant]
     Active Substance: ASPIRIN
     Route: 065
  9. ATORVASTATIN [Concomitant]
     Active Substance: ATORVASTATIN
     Route: 065
  10. BRENZAVVY [Concomitant]
     Active Substance: BEXAGLIFLOZIN
     Route: 065
  11. GLIPIZIDE [Concomitant]
     Active Substance: GLIPIZIDE
     Route: 065
  12. JANUVIA [Concomitant]
     Active Substance: SITAGLIPTIN PHOSPHATE
     Route: 065
  13. LISINOPRIL [Concomitant]
     Active Substance: LISINOPRIL
     Route: 065
  14. DIPROLENE [Concomitant]
     Active Substance: BETAMETHASONE DIPROPIONATE
     Route: 065
  15. JARDIANCE [Concomitant]
     Active Substance: EMPAGLIFLOZIN
     Route: 065

REACTIONS (4)
  - Penile size reduced [Unknown]
  - Blood glucose increased [Unknown]
  - Therapy interrupted [Unknown]
  - Product dose omission in error [Unknown]
